FAERS Safety Report 13573427 (Version 2)
Quarter: 2017Q2

REPORT INFORMATION
  Report Type: Report from Study
  Country: US (occurrence: US)
  Receive Date: 20170523
  Receipt Date: 20170530
  Transmission Date: 20170830
  Serious: No
  Sender: FDA-Public Use
  Company Number: US-AMGEN-USASL2017075985

PATIENT
  Age: 29 Year
  Sex: Female

DRUGS (2)
  1. ENBREL [Suspect]
     Active Substance: ETANERCEPT
     Indication: ANKYLOSING SPONDYLITIS
     Dosage: 50 MG, QWK
     Route: 065
  2. ENBREL [Suspect]
     Active Substance: ETANERCEPT
     Dosage: 50 MG, (LESS OFTEN THAN ONCE WEEKLY AS PRESCRIBED)
     Route: 065

REACTIONS (6)
  - Back pain [Unknown]
  - Pain in extremity [Unknown]
  - Drug dose omission [Unknown]
  - Pain [Unknown]
  - Off label use [Unknown]
  - Intentional product misuse [Unknown]
